FAERS Safety Report 6958599-7 (Version None)
Quarter: 2010Q3

REPORT INFORMATION
  Report Type: 
  Country: None (occurrence: None)
  Receive Date: 20100831
  Receipt Date: 20100823
  Transmission Date: 20110219
  Serious: Yes (Hospitalization, Disabling)
  Sender: FDA-Public Use
  Company Number: US-US-EMD SERONO, INC.-234516J09USA

PATIENT
  Sex: Female
  Weight: 88 kg

DRUGS (2)
  1. REBIF [Suspect]
     Indication: MULTIPLE SCLEROSIS
     Route: 058
     Dates: start: 20090409
  2. ALEVE (CAPLET) [Concomitant]

REACTIONS (6)
  - ABASIA [None]
  - BLOOD PRESSURE DECREASED [None]
  - DYSLIPIDAEMIA [None]
  - DYSPNOEA [None]
  - INJECTION SITE ABSCESS [None]
  - OEDEMA PERIPHERAL [None]
